FAERS Safety Report 7125495-4 (Version None)
Quarter: 2010Q4

REPORT INFORMATION
  Report Type: 
  Country: None (occurrence: None)
  Receive Date: 20101129
  Receipt Date: 20101118
  Transmission Date: 20110411
  Serious: Yes (Other)
  Sender: FDA-Public Use
  Company Number: US-ROCHE-737939

PATIENT
  Sex: Female
  Weight: 52 kg

DRUGS (10)
  1. TOCILIZUMAB [Suspect]
     Indication: RHEUMATOID ARTHRITIS
     Dosage: LAST DOSE PRIOR TO SAE: 23 AUGUST 2010
     Route: 042
     Dates: start: 20090728, end: 20100922
  2. METHOTREXATE [Concomitant]
     Dosage: DOSE: 4 TABS WEAKLY, DOSE 10 MG
     Route: 048
     Dates: start: 20050801
  3. DICLOFENAC SODIUM [Concomitant]
     Dates: start: 20080401
  4. FOLIC ACID [Concomitant]
     Dates: start: 20011001
  5. CALCIUM/VITAMIN D [Concomitant]
     Dates: start: 20010101
  6. FISH OIL [Concomitant]
     Dates: start: 19920101
  7. MULTI-VITAMIN [Concomitant]
     Dosage: TDD: ONE TABLET
     Dates: start: 19900101
  8. TYLENOL (CAPLET) [Concomitant]
     Dates: start: 20000101
  9. BONIVA [Concomitant]
     Dates: start: 20100115
  10. LORAZEPAM [Concomitant]
     Dates: start: 20100224

REACTIONS (1)
  - BREAST CANCER IN SITU [None]
